FAERS Safety Report 19354977 (Version 1)
Quarter: 2021Q2

REPORT INFORMATION
  Report Type: Spontaneous
  Country: US (occurrence: US)
  Receive Date: 20210601
  Receipt Date: 20210601
  Transmission Date: 20210717
  Serious: Yes (Hospitalization)
  Sender: FDA-Public Use
  Company Number: None

PATIENT
  Sex: Female

DRUGS (14)
  1. STOOL SOFTENER (DOCUSATE) [Concomitant]
     Active Substance: DOCUSATE
  2. VITAMIN B12 [Concomitant]
     Active Substance: CYANOCOBALAMIN
  3. AMANTADINE. [Concomitant]
     Active Substance: AMANTADINE HYDROCHLORIDE
  4. ALENDRONATE [Concomitant]
     Active Substance: ALENDRONATE SODIUM
  5. MEMANTINE. [Concomitant]
     Active Substance: MEMANTINE
  6. ARMODAFINIL. [Concomitant]
     Active Substance: ARMODAFINIL
  7. BACLOFEN. [Concomitant]
     Active Substance: BACLOFEN
  8. VITAMIN D [Concomitant]
     Active Substance: VITAMIN D NOS
  9. DALFAMPRIDINE. [Suspect]
     Active Substance: DALFAMPRIDINE
     Indication: MULTIPLE SCLEROSIS
     Route: 048
     Dates: start: 20180323
  10. METHENAM HIP [Concomitant]
  11. TROSPIUM [Concomitant]
     Active Substance: TROSPIUM
  12. VITAMIN C [Concomitant]
     Active Substance: ASCORBIC ACID
  13. BETHANECHOL [Concomitant]
     Active Substance: BETHANECHOL
  14. TERAZOSIN [Concomitant]
     Active Substance: TERAZOSIN HYDROCHLORIDE

REACTIONS (1)
  - Infection [None]
